FAERS Safety Report 23344098 (Version 3)
Quarter: 2024Q2

REPORT INFORMATION
  Report Type: Report from Study
  Country: US (occurrence: US)
  Receive Date: 20231227
  Receipt Date: 20240612
  Transmission Date: 20240715
  Serious: Yes (Hospitalization, Other)
  Sender: FDA-Public Use
  Company Number: US-ABBVIE-5458035

PATIENT
  Sex: Male

DRUGS (6)
  1. RINVOQ [Suspect]
     Active Substance: UPADACITINIB
     Indication: Colitis ulcerative
     Dosage: FORM STRENGTH: 15 MILLIGRAM, ?CESSATION DATE 2023
     Route: 048
     Dates: start: 20230920
  2. RINVOQ [Suspect]
     Active Substance: UPADACITINIB
     Indication: Colitis ulcerative
     Dosage: FORM STRENGTH: 45 MILLIGRAM?LAST ADMIN DATE: 2023
     Route: 048
     Dates: start: 20230802
  3. RINVOQ [Suspect]
     Active Substance: UPADACITINIB
     Indication: Colitis ulcerative
     Dosage: FORM STRENGTH 15 MILLIGRAM, ?CESSATION DATE 2023
     Route: 048
     Dates: start: 20231017
  4. RINVOQ [Suspect]
     Active Substance: UPADACITINIB
     Indication: Colitis ulcerative
     Dosage: FORM STRENGTH: 30 MILLIGRAM, ?ONSET DATE 2023
     Route: 048
  5. RINVOQ [Suspect]
     Active Substance: UPADACITINIB
     Indication: Colitis ulcerative
     Dosage: FORM STRENGTH: 30 MILLIGRAM
     Route: 048
  6. RINVOQ [Suspect]
     Active Substance: UPADACITINIB
     Indication: Colitis ulcerative
     Route: 048

REACTIONS (11)
  - Spinal operation [Unknown]
  - Drug ineffective [Unknown]
  - Abdominal distension [Unknown]
  - Abdominal pain [Unknown]
  - Urinary tract disorder [Not Recovered/Not Resolved]
  - Prostate cancer [Unknown]
  - Dysuria [Not Recovered/Not Resolved]
  - Flatulence [Unknown]
  - Muscle spasms [Unknown]
  - Constipation [Unknown]
  - Pain [Unknown]

NARRATIVE: CASE EVENT DATE: 20230101
